FAERS Safety Report 9752103 (Version 3)
Quarter: 2014Q1

REPORT INFORMATION
  Report Type: Report from Study
  Country: US (occurrence: US)
  Receive Date: 20131213
  Receipt Date: 20140312
  Transmission Date: 20141002
  Serious: Yes (Hospitalization, Other)
  Sender: FDA-Public Use
  Company Number: PHEH2013US025578

PATIENT
  Age: 45 Year
  Sex: Female

DRUGS (1)
  1. GILENYA [Suspect]
     Indication: MULTIPLE SCLEROSIS
     Dosage: 0.5 MG, QD
     Route: 048
     Dates: start: 20130926

REACTIONS (8)
  - Malnutrition [Recovering/Resolving]
  - Weight decreased [Recovering/Resolving]
  - Oral disorder [Recovering/Resolving]
  - Speech disorder [Recovering/Resolving]
  - Aphagia [Recovering/Resolving]
  - Skin ulcer [Recovered/Resolved]
  - Decubitus ulcer [Recovering/Resolving]
  - Pain [Unknown]
